FAERS Safety Report 10681837 (Version 4)
Quarter: 2015Q2

REPORT INFORMATION
  Report Type: Spontaneous
  Country: US (occurrence: None)
  Receive Date: 20141224
  Receipt Date: 20150504
  Transmission Date: 20150821
  Serious: Yes (Other)
  Sender: FDA-Public Use
  Company Number: BTG00168

PATIENT
  Age: 15 Year
  Sex: Female
  Weight: 65 kg

DRUGS (7)
  1. DEXAMETHASONE (DEXAMETHASONE SODIUM PHOSPHATE)??? [Concomitant]
  2. PEPCID [Concomitant]
     Active Substance: FAMOTIDINE
  3. METHOTREXATE (METHOTREXATE SODIUM) [Suspect]
     Active Substance: METHOTREXATE SODIUM
     Indication: ACUTE LYMPHOCYTIC LEUKAEMIA
     Route: 042
     Dates: start: 20141208
  4. LEUCOVORIN (CALCIUM FOLINATE) [Concomitant]
     Active Substance: LEUCOVORIN
  5. VORAXAZE [Suspect]
     Active Substance: GLUCARPIDASE
     Indication: TOXICITY TO VARIOUS AGENTS
     Dosage: 250 UNITS, SINGLE (50 UNITS PER KG)
     Dates: start: 20141211
  6. MAGNESIUM GLUCONATE ? [Concomitant]
  7. ATIVAN (LORAZEPAM)? [Concomitant]

REACTIONS (5)
  - Drug ineffective [None]
  - Renal impairment [None]
  - Pancytopenia [None]
  - Product quality issue [None]
  - Toxicity to various agents [None]

NARRATIVE: CASE EVENT DATE: 20141211
